FAERS Safety Report 23609201 (Version 1)
Quarter: 2024Q1

REPORT INFORMATION
  Report Type: Spontaneous
  Country: GB (occurrence: GB)
  Receive Date: 20240308
  Receipt Date: 20240308
  Transmission Date: 20240410
  Serious: Yes (Hospitalization)
  Sender: FDA-Public Use
  Company Number: None

PATIENT
  Age: 77 Year
  Sex: Male

DRUGS (13)
  1. TRIMETHOPRIM [Suspect]
     Active Substance: TRIMETHOPRIM
     Route: 065
  2. NEFOPAM [Concomitant]
     Active Substance: NEFOPAM
  3. ALLOPURINOL [Concomitant]
     Active Substance: ALLOPURINOL
  4. IBUPROFEN [Concomitant]
     Active Substance: IBUPROFEN
  5. ROPINIROLE [Concomitant]
     Active Substance: ROPINIROLE
  6. METFORMIN [Concomitant]
     Active Substance: METFORMIN HYDROCHLORIDE
  7. LACTULOSE [Concomitant]
     Active Substance: LACTULOSE
  8. ATENOLOL [Concomitant]
     Active Substance: ATENOLOL
  9. TERAZOSIN [Concomitant]
     Active Substance: TERAZOSIN HYDROCHLORIDE
  10. ATORVASTATIN [Concomitant]
     Active Substance: ATORVASTATIN
  11. LINAGLIPTIN [Concomitant]
     Active Substance: LINAGLIPTIN
  12. ENALAPRIL [Suspect]
     Active Substance: ENALAPRIL
     Route: 065
  13. FINASTERIDE [Concomitant]
     Active Substance: FINASTERIDE

REACTIONS (2)
  - Acute kidney injury [Recovered/Resolved]
  - Hyperkalaemia [Unknown]
